FAERS Safety Report 9450532 (Version 1)
Quarter: 2013Q3

REPORT INFORMATION
  Report Type: Spontaneous
  Country: GB (occurrence: GB)
  Receive Date: 20130809
  Receipt Date: 20130809
  Transmission Date: 20140515
  Serious: Yes (Other)
  Sender: FDA-Public Use
  Company Number: GB-SANOFI-AVENTIS-2013SA077317

PATIENT
  Age: 51 Year
  Sex: Male
  Weight: 88.6 kg

DRUGS (6)
  1. TRIAMCINOLONE ACETONIDE [Suspect]
     Indication: LIMB INJURY
     Route: 065
     Dates: start: 20130517
  2. RITONAVIR [Interacting]
     Indication: ANTIRETROVIRAL THERAPY
     Route: 048
     Dates: start: 2002
  3. DARUNAVIR [Concomitant]
  4. TRUVADA [Concomitant]
  5. RALTEGRAVIR [Concomitant]
  6. CITALOPRAM [Concomitant]

REACTIONS (7)
  - Central obesity [Unknown]
  - Fatigue [Unknown]
  - Sleep disorder [Unknown]
  - Oedema peripheral [Unknown]
  - Cushingoid [Not Recovered/Not Resolved]
  - Blood cortisol decreased [Unknown]
  - Drug interaction [Unknown]
